FAERS Safety Report 15886074 (Version 1)
Quarter: 2019Q1

REPORT INFORMATION
  Report Type: Spontaneous
  Country: US (occurrence: US)
  Receive Date: 20190129
  Receipt Date: 20190129
  Transmission Date: 20190417
  Serious: Yes (Other)
  Sender: FDA-Public Use
  Company Number: US-BAYER-2019-018776

PATIENT
  Sex: Female

DRUGS (1)
  1. VITRAKVI [Suspect]
     Active Substance: LAROTRECTINIB
     Indication: MEDULLOBLASTOMA
     Dosage: UNK

REACTIONS (5)
  - Amyotrophic lateral sclerosis [None]
  - Drug ineffective [None]
  - Fall [Recovered/Resolved]
  - Gait disturbance [Recovered/Resolved]
  - White blood cell count increased [Recovered/Resolved]
